FAERS Safety Report 8432542-6 (Version None)
Quarter: 2012Q2

REPORT INFORMATION
  Report Type: 
  Country: None (occurrence: None)
  Receive Date: 20120606
  Receipt Date: 20120528
  Transmission Date: 20120825
  Serious: Yes (Hospitalization, Other)
  Sender: FDA-Public Use
  Company Number: AUR-APL-2012-02206

PATIENT
  Age: 46 Year
  Sex: Male

DRUGS (4)
  1. VICTRELIS [Suspect]
     Indication: HEPATITIS C
     Dosage: 2400 GM (800 GM, 3 IN 1 D), ORAL
     Route: 048
     Dates: start: 20100901, end: 20120313
  2. PROPRANOLOL [Suspect]
     Indication: PRODUCT USED FOR UNKNOWN INDICATION
     Dosage: 60 GM (20 GM, 3 IN 1 D),
  3. RIBAVIRIN [Suspect]
     Indication: PRODUCT USED FOR UNKNOWN INDICATION
     Dosage: 600 GM (200 GM, 3 IN 1 D),
  4. PEGASYS [Suspect]
     Indication: PRODUCT USED FOR UNKNOWN INDICATION
     Dosage: 19.2857 GM (135 GM, 1 IN 1 WK),

REACTIONS (3)
  - OEDEMA [None]
  - NEPHROTIC SYNDROME [None]
  - WEIGHT INCREASED [None]
